FAERS Safety Report 12799142 (Version 4)
Quarter: 2016Q4

REPORT INFORMATION
  Report Type: Spontaneous
  Country: US (occurrence: US)
  Receive Date: 20160930
  Receipt Date: 20161121
  Transmission Date: 20170207
  Serious: Yes (Hospitalization, Other)
  Sender: FDA-Public Use
  Company Number: US-UNITED THERAPEUTICS-UNT-2016-014525

PATIENT
  Age: 52 Year
  Sex: Male
  Weight: 86.17 kg

DRUGS (3)
  1. TYVASO [Suspect]
     Active Substance: TREPROSTINIL
     Dosage: UNK
  2. TYVASO [Suspect]
     Active Substance: TREPROSTINIL
     Indication: PULMONARY HYPERTENSION
     Dosage: 18-54 ?G, QID
     Dates: start: 20160831
  3. SILDENAFIL. [Concomitant]
     Active Substance: SILDENAFIL
     Indication: PRODUCT USED FOR UNKNOWN INDICATION

REACTIONS (9)
  - Renal impairment [Unknown]
  - Oedema peripheral [Unknown]
  - Pneumonia [Unknown]
  - Cough [Unknown]
  - Drug dose omission [Unknown]
  - Weight decreased [Unknown]
  - Ammonia increased [Unknown]
  - Hepatic cirrhosis [Unknown]
  - Nausea [Unknown]

NARRATIVE: CASE EVENT DATE: 2016
